FAERS Safety Report 21546828 (Version 1)
Quarter: 2022Q4

REPORT INFORMATION
  Report Type: Spontaneous
  Country: SE (occurrence: SE)
  Receive Date: 20221103
  Receipt Date: 20221103
  Transmission Date: 20230112
  Serious: Yes (Life-Threatening)
  Sender: FDA-Public Use
  Company Number: None

PATIENT
  Age: 69 Year
  Sex: Female
  Weight: 52 kg

DRUGS (1)
  1. VALACYCLOVIR HYDROCHLORIDE [Suspect]
     Active Substance: VALACYCLOVIR HYDROCHLORIDE
     Indication: Herpes zoster
     Dosage: UNIT DOSE : 3000 MG, DURATION : 3 DAY, VALACICLOVIR ACTAVIS 500 MG FILM-COATED TABLET, FREQUENCY TIM
     Dates: start: 20220930, end: 20221003

REACTIONS (4)
  - Muscular weakness [Recovering/Resolving]
  - Confusional state [Recovering/Resolving]
  - Hypoaesthesia oral [Recovering/Resolving]
  - Malaise [Recovering/Resolving]

NARRATIVE: CASE EVENT DATE: 20221002
